FAERS Safety Report 15884643 (Version 1)
Quarter: 2019Q1

REPORT INFORMATION
  Report Type: Spontaneous
  Country: US (occurrence: US)
  Receive Date: 20190104
  Receipt Date: 20190104
  Transmission Date: 20190417
  Serious: No
  Sender: FDA-Public Use
  Company Number: None

PATIENT
  Age: 57 Year
  Sex: Female

DRUGS (1)
  1. ENBREL [Suspect]
     Active Substance: ETANERCEPT
     Dosage: ?          OTHER
     Route: 058
     Dates: start: 20181221

REACTIONS (4)
  - Injection site urticaria [None]
  - Pruritus [None]
  - Urticaria [None]
  - Throat irritation [None]

NARRATIVE: CASE EVENT DATE: 20190104
